FAERS Safety Report 4436261-2 (Version None)
Quarter: 2004Q3

REPORT INFORMATION
  Report Type: 
  Country: None (occurrence: None)
  Receive Date: 20040830
  Receipt Date: 20040615
  Transmission Date: 20050211
  Serious: Yes (Other)
  Sender: FDA-Public Use
  Company Number: US-BRISTOL-MYERS SQUIBB COMPANY-12616264

PATIENT
  Age: 69 Year
  Sex: Male
  Weight: 79 kg

DRUGS (5)
  1. ERBITUX [Suspect]
     Indication: COLON CANCER
     Dosage: 1ST INFUSION, 2ND INFUSION 10-JUN-2004. LOT # 03C00519 (EXP 8/06) FOR WEEK 7 DOSE
     Route: 042
     Dates: start: 20040603, end: 20040603
  2. BENADRYL [Concomitant]
     Indication: PREMEDICATION
     Dosage: 50 MG IV PREMED. BEFORE 1ST AND 2ND DOSE OF CETUXIMAB
     Route: 042
     Dates: start: 20040603, end: 20040603
  3. IRINOTECAN [Concomitant]
  4. LEUCOVORIN [Concomitant]
  5. FLUOROURACIL [Concomitant]

REACTIONS (2)
  - RASH [None]
  - RASH PAPULAR [None]
